FAERS Safety Report 10403424 (Version 2)
Quarter: 2014Q4

REPORT INFORMATION
  Report Type: Spontaneous
  Country: US (occurrence: US)
  Receive Date: 20140822
  Receipt Date: 20141001
  Transmission Date: 20150528
  Serious: No
  Sender: FDA-Public Use
  Company Number: US-PFIZER INC-2014233211

PATIENT
  Sex: Male

DRUGS (2)
  1. XANAX [Suspect]
     Active Substance: ALPRAZOLAM
     Dosage: 5.5 MG, 1X/DAY
  2. XANAX [Suspect]
     Active Substance: ALPRAZOLAM
     Dosage: 3 MG, DAILY

REACTIONS (5)
  - Speech disorder [Unknown]
  - Hyperhidrosis [Unknown]
  - Headache [Unknown]
  - Aggression [Unknown]
  - Chest pain [Unknown]
